FAERS Safety Report 4963483-4 (Version None)
Quarter: 2006Q2

REPORT INFORMATION
  Report Type: 
  Country: None (occurrence: None)
  Receive Date: 20060404
  Receipt Date: 20060404
  Transmission Date: 20061013
  Serious: Yes (Other)
  Sender: FDA-Public Use
  Company Number: None

PATIENT
  Age: 78 Year
  Sex: Male
  Weight: 105.3 kg

DRUGS (1)
  1. GEMFIBROZIL [Suspect]
     Indication: LIPIDS
     Dosage: 600 MG TWICE  DAY PO
     Route: 048
     Dates: start: 20051115, end: 20051127

REACTIONS (1)
  - ABDOMINAL PAIN LOWER [None]
